FAERS Safety Report 16064110 (Version 1)
Quarter: 2019Q1

REPORT INFORMATION
  Report Type: Spontaneous
  Country: SE (occurrence: SE)
  Receive Date: 20190312
  Receipt Date: 20190312
  Transmission Date: 20190418
  Serious: Yes (Hospitalization)
  Sender: FDA-Public Use
  Company Number: SE-PFIZER INC-2019106631

PATIENT
  Age: 82 Year
  Sex: Male

DRUGS (26)
  1. GANFORT [Concomitant]
     Active Substance: BIMATOPROST\TIMOLOL
  2. CALCICHEW-D3 [Concomitant]
     Active Substance: CALCIUM\CHOLECALCIFEROL
  3. SIMVASTATIN. [Concomitant]
     Active Substance: SIMVASTATIN
  4. ALVEDON [Concomitant]
     Active Substance: ACETAMINOPHEN
     Dosage: UNK, AS NEEDED
  5. PROPYLESS [Concomitant]
  6. LYRICA [Suspect]
     Active Substance: PREGABALIN
     Indication: POLYNEUROPATHY
     Dosage: UNK
  7. LUNELAX [Concomitant]
     Active Substance: HERBALS\PLANTAGO OVATA LEAF
  8. MOXALOLE [Concomitant]
     Dosage: UNK UNK, AS NEEDED
  9. ALLOPURINOL. [Concomitant]
     Active Substance: ALLOPURINOL
  10. BETOLVEX [CYANOCOBALAMIN] [Concomitant]
  11. METOPROLOL. [Concomitant]
     Active Substance: METOPROLOL
  12. LYRICA [Suspect]
     Active Substance: PREGABALIN
     Indication: PARAESTHESIA
  13. KALEORID [Concomitant]
     Active Substance: POTASSIUM CHLORIDE
  14. ZOPIKLON [Concomitant]
     Active Substance: ZOPICLONE
     Dosage: UNK, AS NEEDED
  15. OMEPRAZOL [Concomitant]
     Active Substance: OMEPRAZOLE
  16. CORTIMYK [Concomitant]
  17. FURIX [Concomitant]
     Active Substance: FUROSEMIDE
  18. XERODENT [MALIC ACID;SODIUM FLUORIDE] [Concomitant]
     Dosage: UNK UNK, AS NEEDED
  19. STESOLID [Concomitant]
     Active Substance: DIAZEPAM
     Dosage: UNK, AS NEEDED
  20. TROMBYL [Concomitant]
     Active Substance: ASPIRIN
  21. FOLACIN [FOLIC ACID] [Concomitant]
     Active Substance: FOLIC ACID
  22. FINASTERID [Concomitant]
     Active Substance: FINASTERIDE
  23. MIRTAZAPIN [Concomitant]
     Active Substance: MIRTAZAPINE
  24. LERKANIDIPIN [Concomitant]
  25. DESLORATADIN [Concomitant]
     Active Substance: DESLORATADINE
  26. CITODON [CODEINE PHOSPHATE HEMIHYDRATE;PARACETAMOL] [Concomitant]
     Dosage: UNK, AS NEEDED

REACTIONS (1)
  - Muscle twitching [Unknown]

NARRATIVE: CASE EVENT DATE: 20181028
